FAERS Safety Report 20384728 (Version 1)
Quarter: 2022Q1

REPORT INFORMATION
  Report Type: Spontaneous
  Country: GB (occurrence: GB)
  Receive Date: 20220127
  Receipt Date: 20220127
  Transmission Date: 20220424
  Serious: Yes (Other)
  Sender: FDA-Public Use
  Company Number: GB-NOVARTISPH-NVSC2021GB272298

PATIENT
  Age: 52 Year
  Sex: Female
  Weight: 63.5 kg

DRUGS (29)
  1. CARBOPLATIN [Suspect]
     Active Substance: CARBOPLATIN
     Indication: Small cell lung cancer extensive stage
     Dosage: 630 MG
     Route: 065
     Dates: start: 20210303
  2. ETOPOSIDE [Suspect]
     Active Substance: ETOPOSIDE
     Indication: Small cell lung cancer extensive stage
     Dosage: 180 MG
     Route: 065
     Dates: start: 20210303
  3. ETOPOSIDE [Suspect]
     Active Substance: ETOPOSIDE
     Dosage: 350 MG
     Route: 048
     Dates: start: 20210401
  4. ATEZOLIZUMAB [Suspect]
     Active Substance: ATEZOLIZUMAB
     Indication: Small cell lung cancer extensive stage
     Dosage: 1200 MG
     Route: 041
     Dates: start: 20210303
  5. ATORVASTATIN [Concomitant]
     Active Substance: ATORVASTATIN
     Indication: Product used for unknown indication
     Dosage: UNK
     Route: 065
  6. CETIRIZINE [Concomitant]
     Active Substance: CETIRIZINE HYDROCHLORIDE
     Indication: Product used for unknown indication
     Dosage: 30 MG
     Route: 065
     Dates: start: 20210211, end: 20210213
  7. CETIRIZINE [Concomitant]
     Active Substance: CETIRIZINE HYDROCHLORIDE
     Dosage: 30 MG
     Route: 065
     Dates: start: 20210304, end: 20210306
  8. CETIRIZINE [Concomitant]
     Active Substance: CETIRIZINE HYDROCHLORIDE
     Dosage: 30 MG
     Route: 065
     Dates: start: 20210401, end: 20210403
  9. CHLORPHENIRAMINE MALEATE [Concomitant]
     Active Substance: CHLORPHENIRAMINE MALEATE
     Indication: Product used for unknown indication
     Dosage: 10 MG
     Route: 065
     Dates: start: 20210210, end: 20210210
  10. CHLORPHENIRAMINE MALEATE [Concomitant]
     Active Substance: CHLORPHENIRAMINE MALEATE
     Dosage: 10 MG
     Route: 065
     Dates: start: 20210303, end: 20210303
  11. CHLORPHENIRAMINE MALEATE [Concomitant]
     Active Substance: CHLORPHENIRAMINE MALEATE
     Dosage: 10 MG
     Route: 065
     Dates: start: 20210331, end: 20210331
  12. DEXAMETHASONE [Concomitant]
     Active Substance: DEXAMETHASONE
     Indication: Product used for unknown indication
     Dosage: 12 MG
     Route: 065
     Dates: start: 20210401, end: 20210403
  13. DEXAMETHASONE [Concomitant]
     Active Substance: DEXAMETHASONE
     Dosage: 20 MG
     Route: 065
     Dates: start: 20210303, end: 20210303
  14. DEXAMETHASONE [Concomitant]
     Active Substance: DEXAMETHASONE
     Dosage: 20 MG
     Route: 065
     Dates: start: 20210210, end: 20210210
  15. DEXAMETHASONE [Concomitant]
     Active Substance: DEXAMETHASONE
     Dosage: 20 MG
     Route: 065
     Dates: start: 20210331, end: 20210331
  16. DEXAMETHASONE [Concomitant]
     Active Substance: DEXAMETHASONE
     Dosage: 12 MG
     Route: 065
     Dates: start: 20210304, end: 20210306
  17. DEXAMETHASONE [Concomitant]
     Active Substance: DEXAMETHASONE
     Dosage: 12 MG
     Route: 065
     Dates: start: 20210211, end: 20210213
  18. FLUTICASONE [Concomitant]
     Active Substance: FLUTICASONE
     Indication: Product used for unknown indication
     Route: 065
  19. GRANISETRON [Concomitant]
     Active Substance: GRANISETRON
     Indication: Product used for unknown indication
     Dosage: 3 MG
     Route: 065
     Dates: start: 20210331, end: 20210331
  20. GRANISETRON [Concomitant]
     Active Substance: GRANISETRON
     Dosage: 3 MG
     Route: 065
     Dates: start: 20210303, end: 20210303
  21. GRANISETRON [Concomitant]
     Active Substance: GRANISETRON
     Dosage: 3 MG
     Route: 065
     Dates: start: 20210210, end: 20210210
  22. LEVOTHYROXINE [Concomitant]
     Active Substance: LEVOTHYROXINE
     Indication: Product used for unknown indication
     Dosage: UNK
     Route: 065
     Dates: start: 20210816
  23. LOPERAMIDE [Concomitant]
     Active Substance: LOPERAMIDE
     Indication: Product used for unknown indication
     Dosage: UNK
     Route: 065
     Dates: start: 20211023, end: 20211108
  24. METOCLOPRAMIDE [Concomitant]
     Active Substance: METOCLOPRAMIDE
     Indication: Product used for unknown indication
     Dosage: UNK
     Route: 065
     Dates: start: 20211023, end: 20211108
  25. ACETAMINOPHEN [Concomitant]
     Active Substance: ACETAMINOPHEN
     Indication: Product used for unknown indication
     Dosage: UNK
     Route: 065
  26. RANITIDINE [Concomitant]
     Active Substance: RANITIDINE
     Indication: Product used for unknown indication
     Dosage: 150 UNK
     Route: 065
     Dates: start: 20210210, end: 20210219
  27. RANITIDINE [Concomitant]
     Active Substance: RANITIDINE
     Dosage: 150 MG
     Route: 065
     Dates: start: 20210331, end: 20210409
  28. RANITIDINE [Concomitant]
     Active Substance: RANITIDINE
     Dosage: 150 MG
     Route: 065
     Dates: start: 20210303, end: 20210312
  29. ALBUTEROL [Concomitant]
     Active Substance: ALBUTEROL
     Indication: Product used for unknown indication
     Dosage: UNK
     Route: 065

REACTIONS (9)
  - Hypothyroidism [Not Recovered/Not Resolved]
  - Nausea [Recovered/Resolved]
  - Lower respiratory tract infection [Recovered/Resolved]
  - Arthralgia [Not Recovered/Not Resolved]
  - Back pain [Recovered/Resolved]
  - Fatigue [Not Recovered/Not Resolved]
  - Skin reaction [Recovered/Resolved]
  - Myalgia [Not Recovered/Not Resolved]
  - Back pain [Not Recovered/Not Resolved]

NARRATIVE: CASE EVENT DATE: 20210303
